FAERS Safety Report 9050961 (Version 1)
Quarter: 2013Q1

REPORT INFORMATION
  Report Type: Spontaneous
  Country: CH (occurrence: CH)
  Receive Date: 20130205
  Receipt Date: 20130205
  Transmission Date: 20140127
  Serious: Yes (Hospitalization, Other)
  Sender: FDA-Public Use
  Company Number: CH-009507513-1302CHE000004

PATIENT
  Age: 46 Year
  Sex: Female

DRUGS (4)
  1. REMERON [Suspect]
     Dosage: 300 MG, ONCE
     Route: 048
     Dates: start: 20120911, end: 20120911
  2. PREGABALIN [Suspect]
     Dosage: 800 MG, ONCE
     Route: 048
     Dates: start: 20120911, end: 20120911
  3. ACETAMINOPHEN [Suspect]
     Dosage: 10 G, ONCE
     Route: 048
     Dates: start: 20120911, end: 20120911
  4. DIPYRONE [Suspect]
     Dosage: 2 G, ONCE
     Route: 048
     Dates: start: 20120911, end: 20120911

REACTIONS (6)
  - Suicide attempt [Recovered/Resolved]
  - Intentional overdose [Unknown]
  - Delirium [Recovered/Resolved]
  - Somnolence [Recovered/Resolved]
  - Tremor [Recovered/Resolved]
  - Hallucination [Recovered/Resolved]
